FAERS Safety Report 14151764 (Version 2)
Quarter: 2017Q4

REPORT INFORMATION
  Report Type: Spontaneous
  Country: US (occurrence: US)
  Receive Date: 20171102
  Receipt Date: 20171116
  Transmission Date: 20180321
  Serious: No
  Sender: FDA-Public Use
  Company Number: US-PFIZER INC-2017468981

PATIENT
  Age: 64 Year
  Sex: Female
  Weight: 72.57 kg

DRUGS (2)
  1. EUCRISA [Suspect]
     Active Substance: CRISABOROLE
     Indication: ECZEMA
     Dosage: 60 G, AS NEEDED (TWICE A DAY AS NEEDED)
     Route: 061
     Dates: start: 20171004
  2. CLOBETASOL [Concomitant]
     Active Substance: CLOBETASOL
     Dosage: UNK
     Dates: start: 20171004

REACTIONS (2)
  - Poor quality drug administered [Not Recovered/Not Resolved]
  - Product container seal issue [Not Recovered/Not Resolved]

NARRATIVE: CASE EVENT DATE: 20171004
